FAERS Safety Report 9167316 (Version 2)
Quarter: 2013Q2

REPORT INFORMATION
  Report Type: Spontaneous
  Country: BE (occurrence: BE)
  Receive Date: 20130318
  Receipt Date: 20130422
  Transmission Date: 20140414
  Serious: Yes (Other)
  Sender: FDA-Public Use
  Company Number: BE-AMGEN-BELSP2013018278

PATIENT
  Age: 48 Year
  Sex: Female
  Weight: 67 kg

DRUGS (3)
  1. ENBREL [Suspect]
     Indication: RHEUMATOID ARTHRITIS
     Dosage: 25 MG, 2X
     Route: 058
     Dates: start: 20060320
  2. ENBREL [Suspect]
     Dosage: 50 MG, 1X
     Route: 058
     Dates: end: 20130225
  3. NUROFEN [Concomitant]
     Dosage: UNK

REACTIONS (1)
  - Pancreatitis acute [Recovered/Resolved]
